FAERS Safety Report 25334025 (Version 1)
Quarter: 2025Q2

REPORT INFORMATION
  Report Type: Spontaneous
  Country: CN (occurrence: CN)
  Receive Date: 20250520
  Receipt Date: 20250520
  Transmission Date: 20250716
  Serious: Yes (Other)
  Sender: OCTAPHARMA
  Company Number: CN-OCTA-2025000376

PATIENT
  Age: 62 Year
  Sex: Female
  Weight: 48 kg

DRUGS (6)
  1. ALBUMIN HUMAN [Suspect]
     Active Substance: ALBUMIN HUMAN
     Indication: Hypoproteinaemia
     Dosage: 10 G
     Route: 042
     Dates: start: 20250328, end: 20250331
  2. CELECOXIB [Suspect]
     Active Substance: CELECOXIB
     Indication: Analgesic therapy
     Route: 048
     Dates: start: 20250327
  3. HERBALS [Suspect]
     Active Substance: HERBALS
     Indication: Ill-defined disorder
     Route: 042
     Dates: start: 20250327, end: 20250401
  4. RIVAROXABAN [Suspect]
     Active Substance: RIVAROXABAN
     Indication: Thrombosis prophylaxis
     Route: 048
     Dates: start: 20250327
  5. Recombinant Human Erythropoietin Injection (CHO Cell) [Concomitant]
     Indication: Anaemia
     Route: 058
     Dates: start: 20250329, end: 20250401
  6. IRON SUCROSE [Concomitant]
     Active Substance: IRON SUCROSE
     Indication: Anaemia
     Route: 042
     Dates: start: 20250329, end: 20250401

REACTIONS (1)
  - Hepatic function abnormal [Recovering/Resolving]

NARRATIVE: CASE EVENT DATE: 20250331
